FAERS Safety Report 6176412-5 (Version None)
Quarter: 2009Q2

REPORT INFORMATION
  Report Type: 
  Country: None (occurrence: None)
  Receive Date: 20090501
  Receipt Date: 20090421
  Transmission Date: 20091009
  Serious: Yes (Other)
  Sender: FDA-Public Use
  Company Number: BE-MERCK-0903BEL00011

PATIENT
  Sex: Female

DRUGS (1)
  1. FINASTERIDE [Suspect]
     Indication: ALOPECIA
     Route: 048
     Dates: start: 20071101, end: 20081101

REACTIONS (4)
  - BENIGN HYDATIDIFORM MOLE [None]
  - MOLAR ABORTION [None]
  - PATERNAL DRUGS AFFECTING FOETUS [None]
  - WRONG TECHNIQUE IN DRUG USAGE PROCESS [None]
